FAERS Safety Report 6932251-6 (Version None)
Quarter: 2010Q3

REPORT INFORMATION
  Report Type: 
  Country: None (occurrence: None)
  Receive Date: 20100819
  Receipt Date: 20100809
  Transmission Date: 20110219
  Serious: Yes (Hospitalization)
  Sender: FDA-Public Use
  Company Number: CO-ROCHE-719845

PATIENT
  Age: 67 Year
  Sex: Female

DRUGS (4)
  1. AVASTIN [Suspect]
     Indication: COLORECTAL CANCER
     Dosage: DOSE AND FORM NOT PROVIDED.
     Route: 042
     Dates: end: 20100112
  2. AVASTIN [Suspect]
     Route: 042
     Dates: start: 20100527, end: 20100624
  3. XELODA [Suspect]
     Indication: COLORECTAL CANCER
     Route: 048
     Dates: start: 20100331, end: 20100601
  4. OXALIPLATIN [Concomitant]
     Indication: COLON CANCER
     Dosage: DOSE AND FORM NOT PROVIDED.
     Route: 042
     Dates: end: 20100112

REACTIONS (2)
  - DIARRHOEA [None]
  - HYPOGLYCAEMIA [None]
